FAERS Safety Report 19133777 (Version 3)
Quarter: 2021Q3

REPORT INFORMATION
  Report Type: Report from Study
  Country: US (occurrence: US)
  Receive Date: 20210414
  Receipt Date: 20210709
  Transmission Date: 20211014
  Serious: No
  Sender: FDA-Public Use
  Company Number: NVSC2021US083921

PATIENT
  Age: 57 Year
  Sex: Male

DRUGS (2)
  1. COSENTYX [Suspect]
     Active Substance: SECUKINUMAB
     Dosage: UNK UNK, QW (ALREADY HAD 5 LOADING DOSES TODAY)
     Route: 003
     Dates: start: 20210412
  2. COSENTYX [Suspect]
     Active Substance: SECUKINUMAB
     Indication: PSORIATIC ARTHROPATHY
     Dosage: UNK UNK, QW (LOADING DOSES)
     Route: 003
     Dates: start: 20210308

REACTIONS (2)
  - Fatigue [Recovered/Resolved]
  - Incorrect route of product administration [Unknown]
